FAERS Safety Report 7076392-4 (Version None)
Quarter: 2010Q4

REPORT INFORMATION
  Report Type: 
  Country: None (occurrence: None)
  Receive Date: 20101022
  Receipt Date: 20101008
  Transmission Date: 20110411
  Serious: Yes (Death, Other)
  Sender: FDA-Public Use
  Company Number: 011409

PATIENT

DRUGS (6)
  1. BUSULFEX [Suspect]
     Indication: BONE MARROW CONDITIONING REGIMEN
  2. CYCLOPHOSPHAMIDE [Concomitant]
  3. FLUDARABINE [Concomitant]
  4. MELPHALAN HYDROCHLORIDE [Concomitant]
  5. PENTOSTATIN [Concomitant]
  6. RITUXIMAB [Concomitant]

REACTIONS (7)
  - ACUTE GRAFT VERSUS HOST DISEASE [None]
  - CYTOMEGALOVIRUS INFECTION [None]
  - PNEUMONIA [None]
  - RECURRENT CANCER [None]
  - RESPIRATORY FAILURE [None]
  - SEPSIS [None]
  - THROMBOTIC MICROANGIOPATHY [None]
